FAERS Safety Report 14828397 (Version 1)
Quarter: 2018Q2

REPORT INFORMATION
  Report Type: Spontaneous
  Country: US (occurrence: US)
  Receive Date: 20180430
  Receipt Date: 20180430
  Transmission Date: 20180711
  Serious: No
  Sender: FDA-Public Use
  Company Number: US-SUNOVION-2018SUN001569

PATIENT
  Sex: Male
  Weight: 95.24 kg

DRUGS (2)
  1. BROVANA [Suspect]
     Active Substance: ARFORMOTEROL TARTRATE
     Indication: INTERSTITIAL LUNG DISEASE
     Dosage: 15 ?G, BID
     Route: 055
     Dates: start: 201703
  2. BUDESONIDE. [Suspect]
     Active Substance: BUDESONIDE
     Dosage: UNK

REACTIONS (2)
  - Dysphonia [Unknown]
  - Off label use [Unknown]
